FAERS Safety Report 6743973-4 (Version None)
Quarter: 2010Q2

REPORT INFORMATION
  Report Type: 
  Country: None (occurrence: None)
  Receive Date: 20100527
  Receipt Date: 20100524
  Transmission Date: 20101027
  Serious: Yes (Death, Other)
  Sender: FDA-Public Use
  Company Number: PHHY2010IE19181

PATIENT
  Sex: Male

DRUGS (5)
  1. CLOZARIL [Suspect]
     Indication: PSYCHOTIC DISORDER
     Dosage: 550MG
     Dates: start: 20080325, end: 20091025
  2. CLOZARIL [Suspect]
     Dosage: 500MG DAILY
     Dates: start: 20091026, end: 20100221
  3. LITHIUM [Concomitant]
     Indication: BIPOLAR DISORDER
     Dosage: 1400MG
  4. VALPROATE SODIUM [Concomitant]
     Indication: BIPOLAR DISORDER
     Dosage: 1000MG DAILY
     Route: 048
  5. KWELLS [Concomitant]
     Dosage: 300MG
     Route: 048

REACTIONS (3)
  - SLEEP APNOEA SYNDROME [None]
  - SUDDEN DEATH [None]
  - WEIGHT INCREASED [None]
